FAERS Safety Report 7650010-6 (Version None)
Quarter: 2011Q3

REPORT INFORMATION
  Report Type: 
  Country: None (occurrence: None)
  Receive Date: 20110727
  Receipt Date: 20110718
  Transmission Date: 20111222
  Serious: Yes (Other)
  Sender: FDA-Public Use
  Company Number: 2010US004206

PATIENT
  Age: 89 Year
  Sex: Female
  Weight: 57 kg

DRUGS (6)
  1. VESICARE [Suspect]
     Indication: HYPERTONIC BLADDER
  2. DETROL LA [Suspect]
     Indication: HYPERTONIC BLADDER
     Dosage: 4 MG, UID/QD, ORAL
     Route: 048
  3. DETROL LA [Suspect]
     Indication: HYPERTONIC BLADDER
  4. IBUPROFEN (ADVIL) [Concomitant]
  5. DIOVAN [Concomitant]
  6. METOPROLOL TARTRATE [Concomitant]

REACTIONS (7)
  - URINARY INCONTINENCE [None]
  - DIARRHOEA [None]
  - BLOOD PRESSURE DIASTOLIC DECREASED [None]
  - DRY THROAT [None]
  - DRUG INEFFECTIVE [None]
  - VULVOVAGINAL DRYNESS [None]
  - BLOOD PRESSURE INCREASED [None]
